FAERS Safety Report 5421855-8 (Version None)
Quarter: 2007Q3

REPORT INFORMATION
  Report Type: 
  Country: None (occurrence: None)
  Receive Date: 20070820
  Receipt Date: 20070803
  Transmission Date: 20080115
  Serious: Yes (Death)
  Sender: FDA-Public Use
  Company Number: 16655

PATIENT
  Sex: Female

DRUGS (4)
  1. FLUOROURACIL [Suspect]
     Indication: COLORECTAL CANCER
  2. IRINOTECAN HCL [Suspect]
     Indication: COLORECTAL CANCER
  3. FOLINIC ACID [Suspect]
  4. AVASTIN [Suspect]
     Indication: COLORECTAL CANCER

REACTIONS (2)
  - DEEP VEIN THROMBOSIS [None]
  - PULMONARY EMBOLISM [None]
